FAERS Safety Report 5243447-6 (Version None)
Quarter: 2007Q1

REPORT INFORMATION
  Report Type: 
  Country: None (occurrence: None)
  Receive Date: 20070215
  Receipt Date: 20070130
  Transmission Date: 20070707
  Serious: Yes (Hospitalization)
  Sender: FDA-Public Use
  Company Number: 8021800

PATIENT
  Age: 54 Year
  Sex: Female

DRUGS (5)
  1. KEPPRA [Suspect]
     Dosage: 500 MG 2/D
     Dates: start: 20030120
  2. KEPPRA [Suspect]
     Dosage: 750 MG 2/D
  3. TRILEPTAL [Suspect]
     Dosage: 300 MG 3/D
     Dates: start: 20060911
  4. BISOPROLOL FUMARATE [Suspect]
     Dosage: 5 MG 1/D
     Dates: start: 19980101
  5. OXAZEPAM [Concomitant]

REACTIONS (2)
  - CONDITION AGGRAVATED [None]
  - RENAL COLIC [None]
